FAERS Safety Report 18106673 (Version 1)
Quarter: 2020Q3

REPORT INFORMATION
  Report Type: Spontaneous
  Country: US (occurrence: US)
  Receive Date: 20200803
  Receipt Date: 20200803
  Transmission Date: 20201103
  Serious: Yes (Death)
  Sender: FDA-Public Use
  Company Number: None

PATIENT
  Age: 48 Year
  Sex: Male
  Weight: 80 kg

DRUGS (2)
  1. REMDESIVIR. [Suspect]
     Active Substance: REMDESIVIR
     Indication: COVID-19 TREATMENT
     Route: 040
     Dates: start: 20200707, end: 20200711
  2. DEXAMETHASONE. [Concomitant]
     Active Substance: DEXAMETHASONE
     Dates: start: 20200705, end: 20200718

REACTIONS (4)
  - Heparin-induced thrombocytopenia [None]
  - Renal failure [None]
  - Ischaemic hepatitis [None]
  - Respiratory distress [None]

NARRATIVE: CASE EVENT DATE: 20200801
